FAERS Safety Report 17960481 (Version 1)
Quarter: 2020Q2

REPORT INFORMATION
  Report Type: Report from Study
  Country: None (occurrence: US)
  Receive Date: 20200630
  Receipt Date: 20200630
  Transmission Date: 20200714
  Serious: No
  Sender: FDA-Public Use
  Company Number: US-BIOVITRUM-2019US1710

PATIENT
  Sex: Female

DRUGS (3)
  1. KINERET [Suspect]
     Active Substance: ANAKINRA
     Indication: PERICARDITIS
     Dosage: 100MG/0.67ML
     Route: 058
     Dates: start: 201809
  2. KINERET [Suspect]
     Active Substance: ANAKINRA
     Route: 058
  3. KINERET [Suspect]
     Active Substance: ANAKINRA
     Dosage: START DATE 6AUG2019
     Route: 058

REACTIONS (8)
  - Arthralgia [Unknown]
  - Malaise [Unknown]
  - Bronchitis [Unknown]
  - Muscle atrophy [Unknown]
  - Anxiety [Unknown]
  - Injection site pain [Not Recovered/Not Resolved]
  - Off label use [Unknown]
  - Epicondylitis [Unknown]
